FAERS Safety Report 20672062 (Version 2)
Quarter: 2022Q2

REPORT INFORMATION
  Report Type: Spontaneous
  Country: US (occurrence: US)
  Receive Date: 20220405
  Receipt Date: 20220415
  Transmission Date: 20220721
  Serious: No
  Sender: FDA-Public Use
  Company Number: US-TEVA-2022-US-2017283

PATIENT
  Age: 54 Year
  Sex: Male

DRUGS (1)
  1. ALBUTEROL SULFATE [Suspect]
     Active Substance: ALBUTEROL SULFATE
     Route: 065

REACTIONS (5)
  - Device defective [Unknown]
  - Device delivery system issue [Unknown]
  - Asthma [Unknown]
  - Product cleaning inadequate [Unknown]
  - Device malfunction [Unknown]

NARRATIVE: CASE EVENT DATE: 20220316
